FAERS Safety Report 4776923-0 (Version None)
Quarter: 2005Q3

REPORT INFORMATION
  Report Type: 
  Country: None (occurrence: None)
  Receive Date: 20050922
  Receipt Date: 20050922
  Transmission Date: 20060218
  Serious: Yes (Life-Threatening)
  Sender: FDA-Public Use
  Company Number: None

PATIENT
  Age: 80 Year
  Sex: Female
  Weight: 59.2 kg

DRUGS (2)
  1. ALTEPLASE [Suspect]
     Indication: PERIPHERAL OCCLUSIVE DISEASE
     Dosage: 1MG/HR X 12 HOURS, 0.5 MG/HR IV DRIP
     Route: 041
     Dates: start: 20050106, end: 20050107
  2. HEPARIN [Concomitant]

REACTIONS (4)
  - CEREBRAL HAEMORRHAGE [None]
  - DIZZINESS [None]
  - GAIT DISTURBANCE [None]
  - NAUSEA [None]
